FAERS Safety Report 16981145 (Version 2)
Quarter: 2019Q4

REPORT INFORMATION
  Report Type: Spontaneous
  Country: US (occurrence: US)
  Receive Date: 20191031
  Receipt Date: 20191107
  Transmission Date: 20200122
  Serious: No
  Sender: FDA-Public Use
  Company Number: US-009507513-1910USA011537

PATIENT
  Age: 30 Year
  Sex: Female

DRUGS (7)
  1. GANIRELIX ACETATE INJECTION [Suspect]
     Active Substance: GANIRELIX ACETATE
     Indication: INFERTILITY FEMALE
     Dosage: 250 MICROGRAM, QD
     Route: 058
     Dates: start: 20190712, end: 20191011
  2. GONAL-F [Suspect]
     Active Substance: FOLLITROPIN
     Dosage: 225 IU INTERNATIONAL UNIT(S), QD
     Route: 058
     Dates: start: 20190712, end: 20191011
  3. NOVAREL [Concomitant]
     Active Substance: CHORIOGONADOTROPIN ALFA
     Dosage: 10000 UNITS AS DIRECTED
     Route: 030
     Dates: start: 20190712
  4. MENOPUR [Suspect]
     Active Substance: FOLLITROPIN\LUTEINIZING HORMONE
     Dosage: 150 IU INTERNATIONAL UNIT(S), QD
     Route: 058
     Dates: start: 20190712, end: 20191011
  5. ENDOMETRIN [Concomitant]
     Active Substance: PROGESTERONE
     Dosage: 100 MILLIGRAM, TID
     Route: 067
     Dates: start: 20190805, end: 20190919
  6. ESTRADIOL. [Concomitant]
     Active Substance: ESTRADIOL
     Dosage: 2 MILLIGRAM, BID
     Route: 067
     Dates: start: 20190805
  7. DOXYCYCLINE HYCLATE. [Concomitant]
     Active Substance: DOXYCYCLINE HYCLATE
     Dosage: 100 MILLIGRAM, BID
     Route: 048
     Dates: start: 20190712

REACTIONS (1)
  - Adverse event [Not Recovered/Not Resolved]

NARRATIVE: CASE EVENT DATE: 20190901
